FAERS Safety Report 4999759-4 (Version None)
Quarter: 2006Q2

REPORT INFORMATION
  Report Type: 
  Country: None (occurrence: None)
  Receive Date: 20060511
  Receipt Date: 20060504
  Transmission Date: 20061013
  Serious: Yes (Death, Other)
  Sender: FDA-Public Use
  Company Number: US-GLAXOSMITHKLINE-B0423071A

PATIENT

DRUGS (6)
  1. MELPHALAN [Suspect]
     Dosage: 140MGM2 SINGLE DOSE
     Route: 042
  2. TOTAL BODY IRRADIATION [Suspect]
     Dosage: 1.5GY UNKNOWN
     Route: 065
  3. VINCRISTINE [Concomitant]
     Dosage: .5MG CYCLIC
     Route: 065
  4. DOXORUBICIN [Concomitant]
     Dosage: 10MGM2 CYCLIC
     Route: 065
  5. DEXAMETHASONE [Concomitant]
     Dosage: 40MG CYCLIC
     Route: 048
  6. CYCLOPHOSPHAMIDE [Concomitant]
     Dosage: 4.5GM2 UNKNOWN
     Route: 065

REACTIONS (2)
  - CARDIAC FAILURE [None]
  - VENTRICULAR ARRHYTHMIA [None]
